FAERS Safety Report 8062687-4 (Version None)
Quarter: 2012Q1

REPORT INFORMATION
  Report Type: 
  Country: None (occurrence: None)
  Receive Date: 20120106
  Receipt Date: 20111223
  Transmission Date: 20120608
  Serious: Yes (Other)
  Sender: FDA-Public Use
  Company Number: 2012030683

PATIENT

DRUGS (1)
  1. HUMATE P (ANTIHEMOPHILIC FACTOR (HUMAN) VWF, DRIED, PASTEURIZED) [Suspect]
     Indication: HAEMOPHILIA

REACTIONS (3)
  - PNEUMONIA [None]
  - HEPATITIS [None]
  - RASH [None]
